FAERS Safety Report 19802026 (Version 1)
Quarter: 2021Q3

REPORT INFORMATION
  Report Type: Spontaneous
  Country: SA (occurrence: SA)
  Receive Date: 20210908
  Receipt Date: 20210908
  Transmission Date: 20211014
  Serious: Yes (Hospitalization, Other)
  Sender: FDA-Public Use
  Company Number: SA-SUN PHARMACEUTICAL INDUSTRIES LTD-2021RR-310402

PATIENT
  Age: 65 Year
  Sex: Female

DRUGS (9)
  1. OXALIPLATIN. [Suspect]
     Active Substance: OXALIPLATIN
     Dosage: FOLFOX
     Route: 065
  2. OXALIPLATIN. [Suspect]
     Active Substance: OXALIPLATIN
     Dosage: UNK
     Route: 065
  3. 5?FU [Suspect]
     Active Substance: FLUOROURACIL
     Indication: RECTAL ADENOCARCINOMA
     Dosage: 400 MILLIGRAM/SQ. METER, ON THE FIRST DAY
     Route: 065
  4. CAPECITABINE. [Suspect]
     Active Substance: CAPECITABINE
     Indication: RECTAL ADENOCARCINOMA
     Dosage: 1000 MILLIGRAM/SQ. METER, BID
  5. OXALIPLATIN. [Suspect]
     Active Substance: OXALIPLATIN
     Indication: RECTAL ADENOCARCINOMA
     Dosage: XELOX
     Route: 065
  6. FOLINIC ACID [Suspect]
     Active Substance: LEUCOVORIN
     Indication: RECTAL ADENOCARCINOMA
     Dosage: UNK
     Route: 065
  7. 5?FU [Suspect]
     Active Substance: FLUOROURACIL
     Dosage: 2400 MILLIGRAM/SQ. METER, 46 H INFUSION
     Route: 065
  8. 5?FU [Suspect]
     Active Substance: FLUOROURACIL
     Dosage: FOLFOX
     Route: 065
  9. FOLINIC ACID [Suspect]
     Active Substance: LEUCOVORIN
     Dosage: FOLFOX
     Route: 065

REACTIONS (6)
  - Mucosal inflammation [Recovering/Resolving]
  - Phlebitis [Recovering/Resolving]
  - Pyrexia [Recovering/Resolving]
  - Alopecia [Recovering/Resolving]
  - Pancytopenia [Recovering/Resolving]
  - Diarrhoea [Recovering/Resolving]
